FAERS Safety Report 17107140 (Version 1)
Quarter: 2019Q4

REPORT INFORMATION
  Report Type: Spontaneous
  Country: BG (occurrence: BG)
  Receive Date: 20191203
  Receipt Date: 20191203
  Transmission Date: 20200122
  Serious: Yes (Hospitalization)
  Sender: FDA-Public Use
  Company Number: BG-ASTRAZENECA-2019SF70333

PATIENT
  Age: 38 Year
  Sex: Male

DRUGS (7)
  1. METHYLPREDNISOLONE. [Concomitant]
     Active Substance: METHYLPREDNISOLONE
     Dosage: 5 TABLETS DAILY
  2. BUDESONIDE/FORMOTEROL [Suspect]
     Active Substance: BUDESONIDE\FORMOTEROL
     Indication: ASTHMA
     Dosage: 160/4.5 MCG 2X2 INHALATIONS DAILY
     Route: 055
  3. FASENRA [Suspect]
     Active Substance: BENRALIZUMAB
     Dosage: UNKNOWN
     Route: 058
  4. SALBUTAMOL [Concomitant]
     Active Substance: ALBUTEROL
     Dosage: EVERY DAY
  5. THEOPHYLLINE [Concomitant]
     Active Substance: THEOPHYLLINE ANHYDROUS
     Dosage: 300 MG,UNKNOWN
  6. TIOTROPIUM [Concomitant]
     Active Substance: TIOTROPIUM
     Dosage: 1X2 INHALATIONS
  7. MONTELUKAST [Concomitant]
     Active Substance: MONTELUKAST SODIUM
     Dosage: 10 MG,UNKNOWN

REACTIONS (2)
  - Forced expiratory volume decreased [Unknown]
  - Asthma [Unknown]
